FAERS Safety Report 6166498-6 (Version None)
Quarter: 2009Q2

REPORT INFORMATION
  Report Type: 
  Country: None (occurrence: None)
  Receive Date: 20090422
  Receipt Date: 20090422
  Transmission Date: 20091009
  Serious: Yes (Disabling, Other)
  Sender: FDA-Public Use
  Company Number: None

PATIENT
  Age: 23 Year
  Sex: Male
  Weight: 48.5349 kg

DRUGS (1)
  1. MIRENA [Suspect]
     Dosage: INTRACISTER
     Route: 020
     Dates: start: 20060518, end: 20080421

REACTIONS (4)
  - ACTIVITIES OF DAILY LIVING IMPAIRED [None]
  - IUCD COMPLICATION [None]
  - PAIN [None]
  - PELVIC INFLAMMATORY DISEASE [None]
